FAERS Safety Report 24228250 (Version 1)
Quarter: 2024Q3

REPORT INFORMATION
  Report Type: Spontaneous
  Country: US (occurrence: US)
  Receive Date: 20240820
  Receipt Date: 20240820
  Transmission Date: 20241017
  Serious: No
  Sender: BRISTOL MYERS SQUIBB
  Company Number: US-BRISTOL-MYERS SQUIBB COMPANY-2024-128553

PATIENT
  Age: 80 Year
  Sex: Female

DRUGS (1)
  1. LENALIDOMIDE [Suspect]
     Active Substance: LENALIDOMIDE
     Indication: Neoplasm
     Dosage: TAKE 1 CAPSULE BY MOUTH DAILY ON DAYS 1-21 OF 28-DAY CHEMO CYCLE
     Route: 048

REACTIONS (6)
  - Pruritus [Not Recovered/Not Resolved]
  - Night sweats [Unknown]
  - Dyspnoea [Unknown]
  - Headache [Unknown]
  - Memory impairment [Unknown]
  - Nodule [Unknown]
